FAERS Safety Report 5193292-5 (Version None)
Quarter: 2006Q4

REPORT INFORMATION
  Report Type: 
  Country: None (occurrence: None)
  Receive Date: 20061228
  Receipt Date: 20060828
  Transmission Date: 20070319
  Serious: No
  Sender: FDA-Public Use
  Company Number: US-GLAXOSMITHKLINE-A0618249A

PATIENT
  Age: 47 Year
  Sex: Male
  Weight: 72.7 kg

DRUGS (6)
  1. AVODART [Suspect]
     Indication: BENIGN PROSTATIC HYPERPLASIA
     Dosage: .5MG PER DAY
     Route: 048
     Dates: start: 20050901
  2. LIPITOR [Concomitant]
  3. ADDERALL 10 [Concomitant]
  4. WELLBUTRIN XL [Concomitant]
  5. SINGULAIR [Concomitant]
  6. FLOMAX [Concomitant]

REACTIONS (2)
  - BREAST MASS [None]
  - BREAST SWELLING [None]
